FAERS Safety Report 8606229-0 (Version None)
Quarter: 2012Q3

REPORT INFORMATION
  Report Type: 
  Country: None (occurrence: None)
  Receive Date: 20120820
  Receipt Date: 20120816
  Transmission Date: 20120928
  Serious: Yes (Other)
  Sender: FDA-Public Use
  Company Number: US-TEVA-354643USA

PATIENT
  Sex: Female

DRUGS (2)
  1. TREANDA [Suspect]
  2. RITUXIMAB [Suspect]

REACTIONS (1)
  - APLASIA PURE RED CELL [None]
